FAERS Safety Report 8463446-0 (Version None)
Quarter: 2012Q2

REPORT INFORMATION
  Report Type: 
  Country: None (occurrence: None)
  Receive Date: 20120625
  Receipt Date: 20120618
  Transmission Date: 20120825
  Serious: Yes (Hospitalization, Disabling, Other)
  Sender: FDA-Public Use
  Company Number: US-MERCK-1203USA03326

PATIENT
  Age: 80 Year
  Sex: Female
  Weight: 72 kg

DRUGS (5)
  1. FOSAMAX [Suspect]
     Indication: OSTEOPENIA
     Route: 048
     Dates: start: 20011201, end: 20101201
  2. FOSAMAX [Suspect]
     Indication: OSTEOPOROSIS
     Route: 048
     Dates: start: 20011201, end: 20101201
  3. FOSAMAX [Suspect]
     Route: 048
     Dates: start: 20070101, end: 20100101
  4. FOSAMAX [Suspect]
     Route: 048
     Dates: start: 20070101, end: 20100101
  5. LEVOTHYROXINE SODIUM [Concomitant]
     Indication: THYROID DISORDER
     Dosage: 1947 TO PRESENT
     Route: 048

REACTIONS (63)
  - ANAEMIA [None]
  - BACK PAIN [None]
  - STRESS FRACTURE [None]
  - ACUTE STRESS DISORDER [None]
  - ANXIETY [None]
  - SYNOVIAL CYST [None]
  - PYREXIA [None]
  - CYST [None]
  - EXCORIATION [None]
  - NASAL CONGESTION [None]
  - ROAD TRAFFIC ACCIDENT [None]
  - DYSPNOEA [None]
  - CYSTOCELE [None]
  - LUMBAR SPINAL STENOSIS [None]
  - PANIC ATTACK [None]
  - URINARY RETENTION [None]
  - URINARY INCONTINENCE [None]
  - FEMUR FRACTURE [None]
  - CARDIOVASCULAR DISORDER [None]
  - IMPAIRED FASTING GLUCOSE [None]
  - TOOTH DISORDER [None]
  - HAEMORRHOIDS [None]
  - FIBROCYSTIC BREAST DISEASE [None]
  - APPENDIX DISORDER [None]
  - BONE DISORDER [None]
  - CULTURE URINE POSITIVE [None]
  - CONSTIPATION [None]
  - MITRAL VALVE CALCIFICATION [None]
  - SPINAL OSTEOARTHRITIS [None]
  - LUMBAR RADICULOPATHY [None]
  - ARTHRALGIA [None]
  - PAIN [None]
  - NASAL SEPTUM DEVIATION [None]
  - HYPERCHOLESTEROLAEMIA [None]
  - FOOT FRACTURE [None]
  - ARTHROPATHY [None]
  - HEART VALVE INCOMPETENCE [None]
  - HEADACHE [None]
  - BLOOD PRESSURE INCREASED [None]
  - TOOTH LOSS [None]
  - OSTEOPOROSIS [None]
  - LIGAMENT SPRAIN [None]
  - CONTUSION [None]
  - OEDEMA PERIPHERAL [None]
  - SPINAL COLUMN STENOSIS [None]
  - NODAL OSTEOARTHRITIS [None]
  - HORMONE LEVEL ABNORMAL [None]
  - GAIT DISTURBANCE [None]
  - BACK DISORDER [None]
  - AORTIC VALVE SCLEROSIS [None]
  - VERTEBRAL FORAMINAL STENOSIS [None]
  - OESTROGEN DEFICIENCY [None]
  - ANTINUCLEAR ANTIBODY POSITIVE [None]
  - ADVERSE EVENT [None]
  - PAIN IN EXTREMITY [None]
  - OSTEOARTHRITIS [None]
  - LOW TURNOVER OSTEOPATHY [None]
  - FALL [None]
  - JAW DISORDER [None]
  - SYNCOPE [None]
  - SLEEP DISORDER [None]
  - HYPERTONIC BLADDER [None]
  - HEAD INJURY [None]
